FAERS Safety Report 15387448 (Version 1)
Quarter: 2018Q3

REPORT INFORMATION
  Report Type: Report from Study
  Country: TR (occurrence: TR)
  Receive Date: 20180914
  Receipt Date: 20180914
  Transmission Date: 20181010
  Serious: Yes (Congenital Anomaly, Other)
  Sender: FDA-Public Use
  Company Number: TR-MYLANLABS-2018M1067368

PATIENT
  Sex: Male

DRUGS (2)
  1. LEVETIRACETAM. [Suspect]
     Active Substance: LEVETIRACETAM
     Indication: PARTIAL SEIZURES
     Route: 064
  2. VALPROIC ACID. [Suspect]
     Active Substance: VALPROIC ACID
     Indication: PARTIAL SEIZURES
     Route: 064

REACTIONS (6)
  - Craniofacial deformity [Unknown]
  - Poor sucking reflex [Unknown]
  - Foetal exposure during pregnancy [Recovered/Resolved]
  - Congenital musculoskeletal anomaly [Unknown]
  - Heart disease congenital [Unknown]
  - Gastrointestinal malformation [Unknown]
